FAERS Safety Report 6505792-3 (Version None)
Quarter: 2009Q4

REPORT INFORMATION
  Report Type: 
  Country: None (occurrence: None)
  Receive Date: 20091218
  Receipt Date: 20091211
  Transmission Date: 20100525
  Serious: Yes (Hospitalization)
  Sender: FDA-Public Use
  Company Number: CN-SANOFI-AVENTIS-2009SA008070

PATIENT
  Age: 60 Year
  Sex: Male

DRUGS (3)
  1. TAXOTERE [Suspect]
     Indication: GASTRIC CANCER
     Dosage: 0.5 ML FROM 20MG AND 2.0 ML FROM 80 MG
     Route: 042
     Dates: end: 20091120
  2. CALCIUM FOLINATE [Concomitant]
     Indication: GASTRIC CANCER
     Route: 065
     Dates: end: 20091120
  3. FLUOROURACIL [Concomitant]
     Indication: GASTRIC CANCER
     Route: 065
     Dates: end: 20091120

REACTIONS (2)
  - INTESTINAL OBSTRUCTION [None]
  - PANCREATITIS [None]
